FAERS Safety Report 7802282-2 (Version None)
Quarter: 2011Q4

REPORT INFORMATION
  Report Type: 
  Country: None (occurrence: None)
  Receive Date: 20111007
  Receipt Date: 20110926
  Transmission Date: 20120403
  Serious: No
  Sender: FDA-Public Use
  Company Number: IT-MUTUAL PHARMACEUTICAL COMPANY, INC.-SFTM20110004

PATIENT
  Age: 1 Year
  Sex: Female

DRUGS (9)
  1. TRIMETHOPRIM + SULFAMETHOXAZOLE [Suspect]
     Route: 065
  2. ACYCLOVIR [Concomitant]
     Indication: PNEUMONIA
     Route: 065
  3. CIPROFLOXACIN [Concomitant]
     Indication: PNEUMONIA
     Route: 065
  4. MIDAZOLAM HCL [Concomitant]
     Indication: SEDATION
     Route: 041
  5. MORPHINE [Concomitant]
     Indication: PAIN
     Route: 041
  6. METHYLPREDNISOLONE [Concomitant]
     Indication: EOSINOPHILIC PNEUMONIA
     Route: 065
  7. AZATHIOPRINE [Concomitant]
     Route: 065
  8. TRIMETHOPRIM + SULFAMETHOXAZOLE [Suspect]
     Indication: PNEUMOCYSTIS JIROVECI PNEUMONIA
     Route: 065
  9. FLUCONAZOLE [Concomitant]
     Indication: PNEUMONIA
     Route: 065

REACTIONS (2)
  - CHOREA [None]
  - TREMOR [None]
